FAERS Safety Report 23858280 (Version 2)
Quarter: 2024Q2

REPORT INFORMATION
  Report Type: Spontaneous
  Country: US (occurrence: US)
  Receive Date: 20240515
  Receipt Date: 20240517
  Transmission Date: 20240715
  Serious: No
  Sender: FDA-Public Use
  Company Number: US-PFIZER INC-PV202300142055

PATIENT
  Age: 67 Year
  Sex: Male

DRUGS (7)
  1. INLYTA [Suspect]
     Active Substance: AXITINIB
     Dosage: TAKE 1 TABLET TWO TIMES DAILY FOR 14 DAYS, THEN REST FOR 7 DAYS
     Route: 048
  2. INLYTA [Suspect]
     Active Substance: AXITINIB
     Dosage: TAKE 1 TABLET (5 MG TOTAL) 2 TIMES A DAY, 21 DAYS AND THEN OFF 7, AND THEN BACK ON ANOTHER 21 DAYS
     Route: 048
  3. PEMBROLIZUMAB [Concomitant]
     Active Substance: PEMBROLIZUMAB
     Dosage: TAKE FOR 14 DAYS THEN HOLD FOR 7 DAYS
  4. LOMOTIL [Concomitant]
     Active Substance: ATROPINE SULFATE\DIPHENOXYLATE HYDROCHLORIDE
     Indication: Diarrhoea
     Dosage: TAKE 1 TO 2 TABLETS 4 TIMES DAILY AS NEEDED
     Route: 048
  5. NEURONTIN [Concomitant]
     Active Substance: GABAPENTIN
     Dosage: START 100 MG AT NIGHT
     Route: 048
  6. NEURONTIN [Concomitant]
     Active Substance: GABAPENTIN
     Dosage: AFTER4 DAYS IF TOLERATED INCREASE TO 200 MG AT NIGHT
     Route: 048
  7. NEURONTIN [Concomitant]
     Active Substance: GABAPENTIN
     Dosage: AFTER 4 DAYS IF TOLERATED INCREASE TO 300 MG AT NIGHT
     Route: 048

REACTIONS (6)
  - Off label use [Unknown]
  - Product use issue [Unknown]
  - Wrong schedule [Unknown]
  - Product dispensing error [Unknown]
  - Blood disorder [Unknown]
  - Illness [Unknown]
